FAERS Safety Report 7708626-4 (Version None)
Quarter: 2011Q3

REPORT INFORMATION
  Report Type: 
  Country: None (occurrence: None)
  Receive Date: 20110819
  Receipt Date: 20110808
  Transmission Date: 20111222
  Serious: Yes (Other)
  Sender: FDA-Public Use
  Company Number: 2011MA011511

PATIENT
  Sex: Female

DRUGS (2)
  1. LORAZEPAM [Suspect]
  2. SERTRALINE HYDROCHLORIDE [Suspect]

REACTIONS (5)
  - WEIGHT INCREASED [None]
  - CONDITION AGGRAVATED [None]
  - ABDOMINAL DISTENSION [None]
  - OBSESSIVE-COMPULSIVE DISORDER [None]
  - ACTIVITIES OF DAILY LIVING IMPAIRED [None]
